FAERS Safety Report 20649979 (Version 1)
Quarter: 2022Q1

REPORT INFORMATION
  Report Type: Spontaneous
  Country: US (occurrence: None)
  Receive Date: 20220329
  Receipt Date: 20220329
  Transmission Date: 20220423
  Serious: No
  Sender: FDA-Public Use
  Company Number: None

PATIENT
  Age: 48 Year
  Sex: Male

DRUGS (1)
  1. SKYRIZI [Suspect]
     Active Substance: RISANKIZUMAB-RZAA
     Indication: Psoriasis
     Dosage: OTHER FREQUENCY : WEEK 4 THEN Q12 WK;?
     Route: 058
     Dates: start: 202109

REACTIONS (4)
  - COVID-19 [None]
  - Swelling face [None]
  - Lip swelling [None]
  - Therapy interrupted [None]
